FAERS Safety Report 9817906 (Version 1)
Quarter: 2014Q1

REPORT INFORMATION
  Report Type: Spontaneous
  Country: HK (occurrence: HK)
  Receive Date: 20140115
  Receipt Date: 20140115
  Transmission Date: 20141002
  Serious: Yes (Other)
  Sender: FDA-Public Use
  Company Number: PHHY2014HK002875

PATIENT
  Age: 60 Year
  Sex: Male

DRUGS (5)
  1. CICLOSPORIN [Suspect]
     Indication: APLASIA PURE RED CELL
     Dates: start: 1993
  2. CICLOSPORIN [Suspect]
     Dates: start: 199606
  3. PREDNISOLONE [Concomitant]
     Indication: APLASIA PURE RED CELL
     Dates: start: 1993
  4. ALEMTUZUMAB [Concomitant]
     Indication: APLASIA PURE RED CELL
     Dosage: 15 MG, TIW, FOR 4 WEEKS
     Route: 058
  5. PARACETAMOL [Concomitant]
     Dosage: 500 MG, UNK

REACTIONS (2)
  - Peptic ulcer perforation [Unknown]
  - Pneumocystis jirovecii pneumonia [Unknown]
